FAERS Safety Report 10344707 (Version 1)
Quarter: 2014Q3

REPORT INFORMATION
  Report Type: Spontaneous
  Country: US (occurrence: None)
  Receive Date: 20140724
  Receipt Date: 20140724
  Transmission Date: 20150326
  Serious: No
  Sender: FDA-Public Use
  Company Number: None

PATIENT
  Age: 69 Year
  Sex: Female
  Weight: 53.07 kg

DRUGS (16)
  1. VITAMIN K [Concomitant]
     Active Substance: PHYTONADIONE
  2. MILK THISTLE [Concomitant]
     Active Substance: MILK THISTLE
  3. ATROVENT [Concomitant]
     Active Substance: IPRATROPIUM BROMIDE
  4. VITAMIN C [Concomitant]
     Active Substance: ASCORBIC ACID
  5. FLAXSEED [Concomitant]
     Active Substance: FLAX SEED
  6. CALCIUM PLUS VITAMIN D3 [Concomitant]
  7. PSYLLIUM [Concomitant]
     Active Substance: PLANTAGO SEED
  8. FOLIC ACID. [Concomitant]
     Active Substance: FOLIC ACID
  9. LUBRICANT [Concomitant]
     Active Substance: UNSPECIFIED INGREDIENT
  10. MAGNESIUM [Concomitant]
     Active Substance: MAGNESIUM
  11. POTASSIUM [Concomitant]
     Active Substance: POTASSIUM
  12. PROAIR HFA [Concomitant]
     Active Substance: ALBUTEROL SULFATE
  13. MEGA VITAMINS FOR SENIORS [Concomitant]
  14. ASPIRIN. [Concomitant]
     Active Substance: ASPIRIN
  15. NIACIN. [Suspect]
     Active Substance: NIACIN
     Indication: BLOOD CHOLESTEROL INCREASED
     Dosage: 500 ML?3 PILLS/NIGHT?DAILY ?MOUTH
     Route: 048
  16. LORATADINE. [Concomitant]
     Active Substance: LORATADINE

REACTIONS (3)
  - Product substitution issue [None]
  - Drug effect decreased [None]
  - Medication residue present [None]

NARRATIVE: CASE EVENT DATE: 2013
